FAERS Safety Report 9861230 (Version 2)
Quarter: 2014Q1

REPORT INFORMATION
  Report Type: Spontaneous
  Country: IT (occurrence: IT)
  Receive Date: 20140202
  Receipt Date: 20140325
  Transmission Date: 20141002
  Serious: Yes (Hospitalization)
  Sender: FDA-Public Use
  Company Number: IT-BRISTOL-MYERS SQUIBB COMPANY-20087078

PATIENT
  Age: 84 Year
  Sex: Female

DRUGS (5)
  1. COUMADIN TABS 5 MG [Suspect]
     Dosage: 1DF=1 UNIT NOS
     Dates: start: 20080606, end: 20131230
  2. BISOPROLOL HEMIFUMARATE [Concomitant]
  3. LANSOPRAZOLE [Concomitant]
  4. FLUCONAZOLE [Concomitant]
  5. LASITONE [Concomitant]
     Dosage: CAPS

REACTIONS (2)
  - Cerebral haemorrhage [Unknown]
  - Aphasia [Unknown]
